FAERS Safety Report 13282011 (Version 1)
Quarter: 2017Q1

REPORT INFORMATION
  Report Type: Spontaneous
  Country: US (occurrence: US)
  Receive Date: 20170301
  Receipt Date: 20170301
  Transmission Date: 20170428
  Serious: Yes (Hospitalization, Other)
  Sender: FDA-Public Use
  Company Number: US-TEVA-743472USA

PATIENT
  Sex: Female

DRUGS (1)
  1. COPAXONE [Suspect]
     Active Substance: GLATIRAMER ACETATE
     Indication: MULTIPLE SCLEROSIS
     Route: 058

REACTIONS (6)
  - Abasia [Recovered/Resolved]
  - Multiple sclerosis relapse [Recovered/Resolved]
  - Cerebrovascular accident [Recovered/Resolved]
  - Motor dysfunction [Recovered/Resolved]
  - Hemiplegia [Recovered/Resolved]
  - Speech disorder [Recovered/Resolved]
